FAERS Safety Report 14822179 (Version 1)
Quarter: 2018Q2

REPORT INFORMATION
  Report Type: Report from Study
  Country: FR (occurrence: FR)
  Receive Date: 20180427
  Receipt Date: 20180427
  Transmission Date: 20180711
  Serious: Yes (Other)
  Sender: FDA-Public Use
  Company Number: FR-PFIZER INC-2018168846

PATIENT
  Age: 37 Year
  Sex: Male
  Weight: 71.5 kg

DRUGS (21)
  1. ADVAGRAF [Concomitant]
     Active Substance: TACROLIMUS
     Dosage: 13 MG, 1X/DAY
     Dates: start: 20160823, end: 20160830
  2. ADVAGRAF [Concomitant]
     Active Substance: TACROLIMUS
     Dosage: 11 MG, 1X/DAY
     Dates: start: 20161006, end: 20161118
  3. PREDNISOLONE. [Concomitant]
     Active Substance: PREDNISOLONE
     Indication: RENAL TRANSPLANT
     Dosage: 17.5 MG, 1X/DAY
  4. LERCAN [Concomitant]
     Active Substance: LERCANIDIPINE
     Indication: HYPERTENSION
     Dosage: 20 MG, 1X/DAY
     Route: 048
     Dates: start: 20171128
  5. ADVAGRAF [Concomitant]
     Active Substance: TACROLIMUS
     Indication: RENAL TRANSPLANT
     Dosage: 11 MG, 1X/DAY
     Dates: start: 20160814, end: 20160819
  6. BACTRIM [Concomitant]
     Active Substance: SULFAMETHOXAZOLE\TRIMETHOPRIM
     Indication: ANTIFUNGAL PROPHYLAXIS
     Dosage: 1 DF, 1X/DAY
     Route: 048
     Dates: start: 20180222
  7. CORTANCYL [Concomitant]
     Active Substance: PREDNISONE
     Indication: RENAL TRANSPLANT
     Dosage: 5 MG, 1X/DAY
     Dates: start: 20160816
  8. ADVAGRAF [Concomitant]
     Active Substance: TACROLIMUS
     Dosage: 13 MG, 1X/DAY
     Dates: start: 20160914, end: 20161005
  9. ENVARSUS XR [Suspect]
     Active Substance: TACROLIMUS
     Indication: PROPHYLAXIS AGAINST TRANSPLANT REJECTION
     Dosage: 8 MG, 1X/DAY
     Route: 048
     Dates: start: 20171128
  10. ENTOCORT [Concomitant]
     Active Substance: BUDESONIDE
     Indication: IGA NEPHROPATHY
     Dosage: 15 MG, 1X/DAY
     Route: 048
     Dates: start: 20170830, end: 20180221
  11. SOLU-MEDROL [Suspect]
     Active Substance: METHYLPREDNISOLONE SODIUM SUCCINATE
     Indication: IGA NEPHROPATHY
     Dosage: 1 G, UNK
     Route: 042
     Dates: start: 20180219, end: 20180221
  12. ADVAGRAF [Concomitant]
     Active Substance: TACROLIMUS
     Dosage: 10 MG, 1X/DAY
     Dates: start: 20161214, end: 20170206
  13. ZYMAD [Concomitant]
     Active Substance: CHOLECALCIFEROL
     Indication: VITAMIN D DEFICIENCY
     Dosage: 200000 IU, PER MONTH
     Route: 048
     Dates: start: 20161020
  14. ADVAGRAF [Concomitant]
     Active Substance: TACROLIMUS
     Dosage: 12 MG, 1X/DAY
     Dates: start: 20161119, end: 20161213
  15. ADVAGRAF [Concomitant]
     Active Substance: TACROLIMUS
     Dosage: 15 MG, 1X/DAY
     Dates: start: 20160831, end: 20160913
  16. ADVAGRAF [Concomitant]
     Active Substance: TACROLIMUS
     Dosage: 7 MG, 1X/DAY
     Dates: start: 20170328, end: 20170524
  17. RAMIPRIL. [Concomitant]
     Active Substance: RAMIPRIL
     Indication: HYPERTENSION
     Dosage: 10 MG, 1X/DAY
     Route: 048
     Dates: start: 20170803
  18. ADVAGRAF [Concomitant]
     Active Substance: TACROLIMUS
     Dosage: 10 MG, 1X/DAY
     Dates: start: 20160820, end: 20160822
  19. ADVAGRAF [Concomitant]
     Active Substance: TACROLIMUS
     Dosage: 8 MG, 1X/DAY
     Dates: start: 20170207, end: 20170327
  20. ADVAGRAF [Concomitant]
     Active Substance: TACROLIMUS
     Dosage: 8 MG, 1X/DAY
     Dates: start: 20171006, end: 20171128
  21. MYFORTIC [Concomitant]
     Active Substance: MYCOPHENOLATE SODIUM
     Indication: RENAL TRANSPLANT
     Dosage: 1440 MG, 1X/DAY
     Dates: start: 20160814

REACTIONS (5)
  - Hyperglycaemia [Recovered/Resolved]
  - Hypertension [Recovered/Resolved]
  - Arteriovenous fistula thrombosis [Not Recovered/Not Resolved]
  - Vomiting [Recovered/Resolved]
  - Muscle spasms [Not Recovered/Not Resolved]

NARRATIVE: CASE EVENT DATE: 20180220
